FAERS Safety Report 4281157-2 (Version None)
Quarter: 2004Q1

REPORT INFORMATION
  Report Type: 
  Country: None (occurrence: None)
  Receive Date: 20040127
  Receipt Date: 20040114
  Transmission Date: 20041129
  Serious: Yes (Hospitalization)
  Sender: FDA-Public Use
  Company Number: US-SHR-04-020001

PATIENT
  Age: 17 Year
  Sex: Male

DRUGS (16)
  1. LEUKINE [Suspect]
     Indication: AUTOLOGOUS BONE MARROW TRANSPLANTATION THERAPY
     Dosage: 5 UG/KG/DAY (DAY 3-APHERISIS), SUBCUTANEOUS
     Route: 058
     Dates: start: 20030101, end: 20030101
  2. INTERLEUKIN-2 (INTERLEUKIN-2) [Suspect]
     Indication: AUTOLOGOUS BONE MARROW TRANSPLANTATION THERAPY
     Dosage: SEE IMAGE
     Dates: start: 20031216, end: 20031216
  3. INTERLEUKIN-2 (INTERLEUKIN-2) [Suspect]
     Indication: AUTOLOGOUS BONE MARROW TRANSPLANTATION THERAPY
     Dosage: SEE IMAGE
     Dates: start: 20031216, end: 20040110
  4. G-CSF (GRANULOCYTE COLONY STIMULATING FACTOR) [Suspect]
     Indication: AUTOLOGOUS BONE MARROW TRANSPLANTATION THERAPY
     Dosage: 10 UG/KG/DAY (DAY 10-APHERISIS), SUBCUTANEOUS
     Route: 058
     Dates: start: 20030101, end: 20030101
  5. PERIPHERAL BLOOD STEM CELLS (INCUBATED WITH IL-2)() [Suspect]
     Indication: AUTOLOGOUS BONE MARROW TRANSPLANTATION THERAPY
     Dosage: DAY 0
     Dates: start: 20031216, end: 20031216
  6. TAXOL [Suspect]
     Indication: AUTOLOGOUS BONE MARROW TRANSPLANTATION THERAPY
     Dosage: 250 MG/M2, 1 DOSE (DAY2)
     Dates: start: 20030101, end: 20030101
  7. ZOFRAN [Suspect]
     Indication: AUTOLOGOUS BONE MARROW TRANSPLANTATION THERAPY
     Dosage: 8 MG, 4X/DAY, D-9 THROUGH , ORAL
     Route: 048
     Dates: start: 20030101, end: 20030101
  8. BUSULFAN (BUSULFAN) [Suspect]
     Indication: AUTOLOGOUS BONE MARROW TRANSPLANTATION THERAPY
     Dosage: 1MG/KG/Q6H DAY -8 THROUGH - 6, ORAL
     Route: 048
     Dates: start: 20030101, end: 20030101
  9. MESNA [Suspect]
     Indication: AUTOLOGOUS BONE MARROW TRANSPLANTATION THERAPY
     Dosage: 4 GM/M2/3 DIVIDED DOSES (DAY 1)
     Dates: start: 20030101, end: 20030101
  10. CYCLOPHOSPHAMIDE [Concomitant]
     Indication: AUTOLOGOUS BONE MARROW TRANSPLANTATION THERAPY
     Dosage: 4 GM/M2, 1 DOSE (DAY 1)
     Dates: start: 20030101, end: 20030101
  11. THIOTEPA [Suspect]
     Indication: AUTOLOGOUS BONE MARROW TRANSPLANTATION THERAPY
     Dosage: 250 MG/M2 (DAY-3 + -2)
     Dates: start: 20030101, end: 20030101
  12. DILANTIN [Suspect]
     Indication: AUTOLOGOUS BONE MARROW TRANSPLANTATION THERAPY
     Dosage: SEE IMAGE
     Route: 048
     Dates: start: 20030101, end: 20030101
  13. DILANTIN [Suspect]
     Indication: AUTOLOGOUS BONE MARROW TRANSPLANTATION THERAPY
     Dosage: SEE IMAGE
     Route: 048
     Dates: start: 20031101, end: 20030101
  14. MELPHALAN (MELPHALAN) [Suspect]
     Indication: AUTOLOGOUS BONE MARROW TRANSPLANTATION THERAPY
     Dosage: 50 MG/M2 (DAY-5 + -4)
     Dates: start: 20030101, end: 20030101
  15. VORICONAZOLE (VORICONAZOLE) [Concomitant]
  16. CASPOFUNGIN (CASPOFUNGIN) [Concomitant]

REACTIONS (6)
  - ABDOMINAL DISTENSION [None]
  - ABDOMINAL PAIN [None]
  - LIVER FUNCTION TEST ABNORMAL [None]
  - PYREXIA [None]
  - VENOOCCLUSIVE LIVER DISEASE [None]
  - WEIGHT INCREASED [None]
